FAERS Safety Report 5118409-X (Version None)
Quarter: 2006Q3

REPORT INFORMATION
  Report Type: 
  Country: None (occurrence: None)
  Receive Date: 20060926
  Receipt Date: 20060919
  Transmission Date: 20061208
  Serious: Yes (Other)
  Sender: FDA-Public Use
  Company Number: 2006112215

PATIENT
  Age: 2 Year
  Sex: Male

DRUGS (1)
  1. INFANT'S PEDIACARE DECONGESTANT (PSEUDOEPHEDRINE) [Suspect]
     Dosage: A BOTTLE ONCE, ORAL
     Route: 048
     Dates: start: 20060919, end: 20060919

REACTIONS (2)
  - ACCIDENTAL DRUG INTAKE BY CHILD [None]
  - IRRITABILITY [None]
